FAERS Safety Report 24120464 (Version 1)
Quarter: 2024Q3

REPORT INFORMATION
  Report Type: Report from Study
  Country: US (occurrence: US)
  Receive Date: 20240722
  Receipt Date: 20240722
  Transmission Date: 20241016
  Serious: Yes (Death)
  Sender: SANDOZ
  Company Number: US-SANDOZ-SDZ2024US066778

PATIENT
  Sex: Female

DRUGS (1)
  1. ZIEXTENZO [Suspect]
     Active Substance: PEGFILGRASTIM-BMEZ
     Indication: Pancreatic carcinoma
     Dosage: 6 MG,Q2W
     Route: 058
     Dates: start: 20240625

REACTIONS (1)
  - Drug ineffective [Fatal]
